FAERS Safety Report 8310116-5 (Version None)
Quarter: 2012Q2

REPORT INFORMATION
  Report Type: 
  Country: None (occurrence: None)
  Receive Date: 20120425
  Receipt Date: 20120417
  Transmission Date: 20120825
  Serious: Yes (Hospitalization)
  Sender: FDA-Public Use
  Company Number: US-BAYER-2012-032433

PATIENT
  Age: 50 Year
  Sex: Female

DRUGS (10)
  1. NITROFURANTOIN MONO-MCR [Concomitant]
     Dosage: 100 MG, UNK
  2. LISINOPRIL [Concomitant]
     Indication: HYPERTENSION
     Dosage: 20 MG, QD
     Route: 048
  3. AGGRENOX [Concomitant]
  4. YASMIN [Suspect]
     Dosage: UNK
     Dates: start: 20040201, end: 20110701
  5. LIPITOR [Concomitant]
  6. DROSPIRENONE AND ETHINYL ESTRADIOL [Suspect]
     Dosage: UNK
     Dates: start: 20040201, end: 20110701
  7. MEVACOR [Concomitant]
     Dosage: 80 MG, UNK
     Route: 048
  8. PHENTERMINE [Concomitant]
     Dosage: 37.5 MG, UNK
  9. DOXYCYCLINE HYCLATE [Concomitant]
     Dosage: 100 MG, UNK
  10. LOVASTATIN [Concomitant]
     Indication: BLOOD CHOLESTEROL INCREASED
     Dosage: 20 MG, QID
     Route: 048

REACTIONS (6)
  - EMOTIONAL DISTRESS [None]
  - CEREBROVASCULAR ACCIDENT [None]
  - INJURY [None]
  - ANXIETY [None]
  - PAIN [None]
  - GENERAL PHYSICAL HEALTH DETERIORATION [None]
